FAERS Safety Report 9704904 (Version 1)
Quarter: 2013Q4

REPORT INFORMATION
  Report Type: Not Available
  Country: US (occurrence: US)
  Receive Date: 20131122
  Receipt Date: 20131122
  Transmission Date: 20140711
  Serious: No
  Sender: FDA-Public Use
  Company Number: US-AMARIN PHARMA, INC.-2013AMR000060

PATIENT
  Age: 70 Year
  Sex: Male

DRUGS (2)
  1. VASCEPA [Suspect]
     Indication: BLOOD CHOLESTEROL INCREASED
  2. ADVIL [Concomitant]
     Indication: ARTHRITIS

REACTIONS (1)
  - Therapeutic response unexpected [None]
